FAERS Safety Report 23248101 (Version 2)
Quarter: 2023Q4

REPORT INFORMATION
  Report Type: Spontaneous
  Country: US (occurrence: US)
  Receive Date: 20231130
  Receipt Date: 20231211
  Transmission Date: 20240110
  Serious: Yes (Other)
  Sender: FDA-Public Use
  Company Number: US-PRINSTON PHARMACEUTICAL INC.-2023PRN00592

PATIENT
  Sex: Male

DRUGS (7)
  1. VALSARTAN [Suspect]
     Active Substance: VALSARTAN
     Indication: Hypertension
     Dosage: 160 MG (1 TABLET), 1X/DAY
     Route: 048
     Dates: start: 202309, end: 2023
  2. VALSARTAN [Suspect]
     Active Substance: VALSARTAN
     Dosage: 160 MG (1 TABLET), 1X/DAY
     Route: 048
     Dates: start: 2023, end: 2023
  3. VALSARTAN [Suspect]
     Active Substance: VALSARTAN
     Dosage: 160 MG (1 TABLET), 1X/DAY
     Route: 048
     Dates: start: 2023
  4. VALSARTAN [Suspect]
     Active Substance: VALSARTAN
     Dosage: 160 MG (1 TABLET), 1X/DAY
     Route: 048
     Dates: start: 2023
  5. VITAMIN D [Concomitant]
     Active Substance: VITAMIN D NOS
  6. GLUCOSAMINE [Concomitant]
     Active Substance: GLUCOSAMINE
  7. ROSUVASTATIN [Concomitant]
     Active Substance: ROSUVASTATIN
     Dosage: 20 MG

REACTIONS (6)
  - Blood pressure increased [Recovering/Resolving]
  - Vomiting [Unknown]
  - Nausea [Recovered/Resolved]
  - Dizziness [Recovered/Resolved]
  - Unevaluable event [Unknown]
  - Product quality issue [Unknown]

NARRATIVE: CASE EVENT DATE: 20230101
